FAERS Safety Report 5045075-4 (Version None)
Quarter: 2006Q2

REPORT INFORMATION
  Report Type: 
  Country: None (occurrence: None)
  Receive Date: 20060626
  Receipt Date: 20060614
  Transmission Date: 20061013
  Serious: Yes (Other)
  Sender: FDA-Public Use
  Company Number: THYM-10974

PATIENT
  Sex: Female

DRUGS (4)
  1. THYMOGLOBULIN [Suspect]
     Dates: start: 20041216, end: 20041216
  2. RAPAMUNE [Concomitant]
  3. CELLCEPT [Concomitant]
  4. PREDNISONE [Concomitant]

REACTIONS (12)
  - DIARRHOEA [None]
  - HAEMOGLOBIN DECREASED [None]
  - HAEMORRHAGE [None]
  - LOSS OF CONSCIOUSNESS [None]
  - OEDEMA PERIPHERAL [None]
  - PAIN [None]
  - PAIN IN EXTREMITY [None]
  - PITTING OEDEMA [None]
  - RED BLOOD CELL COUNT DECREASED [None]
  - THROMBOSIS [None]
  - TREMOR [None]
  - VOMITING [None]
